FAERS Safety Report 11896312 (Version 1)
Quarter: 2016Q1

REPORT INFORMATION
  Report Type: Spontaneous
  Country: US (occurrence: US)
  Receive Date: 20160107
  Receipt Date: 20160107
  Transmission Date: 20160526
  Serious: No
  Sender: FDA-Public Use
  Company Number: US-ROCHE-1524327

PATIENT
  Sex: Male

DRUGS (3)
  1. RITUXAN [Suspect]
     Active Substance: RITUXIMAB
     Indication: OPSOCLONUS MYOCLONUS
     Route: 065
     Dates: start: 200710, end: 200812
  2. ACTH [Concomitant]
     Active Substance: CORTICOTROPIN
  3. IVIG [Concomitant]
     Active Substance: HUMAN IMMUNOGLOBULIN G
     Route: 065
     Dates: start: 201305

REACTIONS (3)
  - Gastrointestinal disorder [Unknown]
  - Secondary immunodeficiency [Unknown]
  - Pneumonia [Unknown]
